FAERS Safety Report 10262906 (Version 2)
Quarter: 2014Q2

REPORT INFORMATION
  Report Type: Report from Study
  Country: US (occurrence: US)
  Receive Date: 20140626
  Receipt Date: 20140626
  Transmission Date: 20141212
  Serious: Yes (Life-Threatening, Other)
  Sender: FDA-Public Use
  Company Number: US-MYLANLABS-2013S1021943

PATIENT
  Age: 58 Year
  Sex: Female
  Weight: 70.67 kg

DRUGS (9)
  1. CLOZAPINE TABLETS [Suspect]
     Indication: SCHIZOPHRENIA
     Route: 048
     Dates: start: 1999, end: 20131227
  2. CLOZAPINE TABLETS [Suspect]
     Indication: SCHIZOPHRENIA
     Route: 048
     Dates: start: 1999, end: 20131227
  3. ATORVASTATIN [Concomitant]
     Route: 048
  4. BENZTROPINE [Concomitant]
     Route: 048
  5. LEVETIRACETAM [Concomitant]
     Route: 048
  6. LITHIUM [Concomitant]
     Route: 048
  7. NEXIUM [Concomitant]
     Route: 048
  8. POTASSIUM [Concomitant]
     Route: 048
  9. DOCUSATE [Concomitant]

REACTIONS (3)
  - Agranulocytosis [Recovered/Resolved]
  - Granulocytopenia [Recovered/Resolved]
  - Leukopenia [Recovered/Resolved]
